FAERS Safety Report 14604421 (Version 1)
Quarter: 2018Q1

REPORT INFORMATION
  Report Type: Spontaneous
  Country: US (occurrence: US)
  Receive Date: 20180306
  Receipt Date: 20180306
  Transmission Date: 20180509
  Serious: Yes (Other)
  Sender: FDA-Public Use
  Company Number: US-ELI_LILLY_AND_COMPANY-US201802011082

PATIENT
  Sex: Female

DRUGS (6)
  1. HUMULIN R U-500 [Suspect]
     Active Substance: INSULIN HUMAN
     Dosage: 60 U, DAILY (AT NOON)
     Route: 058
     Dates: start: 2015
  2. HUMULIN R U-500 [Suspect]
     Active Substance: INSULIN HUMAN
     Dosage: 75 U, EACH MORNING
     Route: 058
  3. HUMULIN R U-500 [Suspect]
     Active Substance: INSULIN HUMAN
     Indication: TYPE 2 DIABETES MELLITUS
     Dosage: 75 U, EACH MORNING
     Route: 058
     Dates: start: 2015
  4. HUMULIN R U-500 [Suspect]
     Active Substance: INSULIN HUMAN
     Dosage: 45 U, DAILY (AT NIGHT)
     Route: 058
     Dates: start: 2015
  5. HUMULIN R U-500 [Suspect]
     Active Substance: INSULIN HUMAN
     Dosage: 45 U, DAILY (AT NIGHT)
     Route: 058
  6. HUMULIN R U-500 [Suspect]
     Active Substance: INSULIN HUMAN
     Dosage: 60 U, DAILY (AT NOON)
     Route: 058

REACTIONS (6)
  - Sleep apnoea syndrome [Recovering/Resolving]
  - Hypertension [Recovering/Resolving]
  - Fibromyalgia [Recovering/Resolving]
  - Chronic hepatic failure [Recovering/Resolving]
  - Drug intolerance [Recovering/Resolving]
  - Chronic kidney disease [Recovering/Resolving]
